FAERS Safety Report 13663450 (Version 3)
Quarter: 2017Q3

REPORT INFORMATION
  Report Type: Spontaneous
  Country: US (occurrence: US)
  Receive Date: 20170619
  Receipt Date: 20170804
  Transmission Date: 20171127
  Serious: No
  Sender: FDA-Public Use
  Company Number: US-PFIZER INC-2017261190

PATIENT
  Age: 65 Year
  Sex: Male

DRUGS (2)
  1. KERYDIN [Suspect]
     Active Substance: TAVABOROLE
     Indication: ONYCHOMYCOSIS
     Dosage: UNK
     Route: 061
     Dates: start: 2015
  2. VITAMIN E OIL [Concomitant]
     Dosage: UNK

REACTIONS (1)
  - Nail discolouration [Recovered/Resolved]

NARRATIVE: CASE EVENT DATE: 2016
